FAERS Safety Report 15180063 (Version 2)
Quarter: 2018Q4

REPORT INFORMATION
  Report Type: Spontaneous
  Country: US (occurrence: US)
  Receive Date: 20180723
  Receipt Date: 20181211
  Transmission Date: 20190204
  Serious: Yes (Other)
  Sender: FDA-Public Use
  Company Number: US-PFIZER INC-2018294105

PATIENT
  Age: 34 Year
  Sex: Female

DRUGS (1)
  1. XELJANZ XR [Suspect]
     Active Substance: TOFACITINIB CITRATE
     Indication: RHEUMATOID ARTHRITIS
     Dosage: 11 MG, DAILY
     Route: 048
     Dates: start: 201804

REACTIONS (9)
  - Drug effect incomplete [Unknown]
  - Pyrexia [Unknown]
  - Feeling abnormal [Unknown]
  - Malaise [Unknown]
  - Condition aggravated [Unknown]
  - Upper respiratory tract infection [Unknown]
  - Gastric disorder [Unknown]
  - Diarrhoea [Unknown]
  - Colitis ulcerative [Unknown]

NARRATIVE: CASE EVENT DATE: 2018
